FAERS Safety Report 16060668 (Version 12)
Quarter: 2021Q1

REPORT INFORMATION
  Report Type: Spontaneous
  Country: JP (occurrence: JP)
  Receive Date: 20190312
  Receipt Date: 20210219
  Transmission Date: 20210419
  Serious: Yes (Hospitalization, Other)
  Sender: FDA-Public Use
  Company Number: JP-UNITED THERAPEUTICS-UNT-2016-017777

PATIENT
  Age: 20 Year
  Sex: Female
  Weight: 44.5 kg

DRUGS (30)
  1. REMODULIN [Suspect]
     Active Substance: TREPROSTINIL
     Dosage: 0.0133 ?G/KG, CONTINUING
     Route: 058
     Dates: start: 2017
  2. REMODULIN [Suspect]
     Active Substance: TREPROSTINIL
     Dosage: 0.024 ?G/KG, CONTINUING
     Route: 058
     Dates: start: 2017
  3. REMODULIN [Suspect]
     Active Substance: TREPROSTINIL
     Dosage: 0.038 ?G/KG, CONTINUING
     Route: 058
  4. HEPARINOID [Concomitant]
     Active Substance: CHONDROITIN SULFATE (BOVINE)
     Indication: PROPHYLAXIS
     Dosage: UNK
     Route: 065
     Dates: start: 20170413
  5. HIRUDOID [Concomitant]
     Active Substance: GLYCOSAMINOGLYCANS
     Indication: PROPHYLAXIS
     Dosage: UNK
     Route: 062
  6. REMODULIN [Suspect]
     Active Substance: TREPROSTINIL
     Dosage: 0.0047?G/KG, CONTINUING
     Route: 058
     Dates: start: 201611
  7. REMODULIN [Suspect]
     Active Substance: TREPROSTINIL
     Dosage: 0.0104 ?G/KG, CONTINUING
     Route: 058
     Dates: start: 201611
  8. REMODULIN [Suspect]
     Active Substance: TREPROSTINIL
     Dosage: 0.0116 ?G/KG, CONTINUING
     Route: 058
  9. CALONAL [Concomitant]
     Active Substance: ACETAMINOPHEN
     Indication: PROPHYLAXIS
     Dosage: 800 MG, PER DAY
     Route: 048
     Dates: start: 20170608, end: 20170713
  10. ACETAMINOPHEN. [Concomitant]
     Active Substance: ACETAMINOPHEN
     Indication: PRODUCT USED FOR UNKNOWN INDICATION
     Dosage: UNK
     Route: 048
     Dates: start: 20161120, end: 20161125
  11. RINDERON V [Concomitant]
     Active Substance: BETAMETHASONE VALERATE
     Indication: PROPHYLAXIS
     Dosage: UNK
     Route: 062
     Dates: start: 20171026, end: 20171130
  12. REMODULIN [Suspect]
     Active Substance: TREPROSTINIL
     Indication: PULMONARY ARTERIAL HYPERTENSION
     Dosage: UNK, CONTINUING
     Route: 058
     Dates: start: 20161109
  13. REMODULIN [Suspect]
     Active Substance: TREPROSTINIL
     Dosage: 0.018 ?G/KG, CONTINUING
     Route: 058
     Dates: start: 2017, end: 20170822
  14. REMODULIN [Suspect]
     Active Substance: TREPROSTINIL
     Dosage: 0.03 ?G/KG, CONTINUING
     Route: 058
  15. TRAMCET [Concomitant]
     Active Substance: ACETAMINOPHEN\TRAMADOL
     Indication: PROPHYLAXIS
     Dosage: 4 DF, PER DAY
     Route: 048
     Dates: start: 20161126
  16. UREA. [Concomitant]
     Active Substance: UREA
     Indication: PROPHYLAXIS
     Dosage: UNK
     Route: 065
     Dates: start: 20191028
  17. REMODULIN [Suspect]
     Active Substance: TREPROSTINIL
     Dosage: 0.0084 ?G/KG, CONTINUING
     Route: 058
     Dates: start: 201611
  18. REMODULIN [Suspect]
     Active Substance: TREPROSTINIL
     Dosage: 0.032 ?G/KG, CONTINUING
     Route: 058
  19. REMODULIN [Suspect]
     Active Substance: TREPROSTINIL
     Indication: PULMONARY ARTERIAL HYPERTENSION
     Dosage: UNK, CONTINUING
     Route: 041
     Dates: start: 20170822, end: 20170825
  20. REMODULIN [Suspect]
     Active Substance: TREPROSTINIL
     Dosage: 0.038 ?G/KG, CONTINUING
     Route: 041
     Dates: end: 20190307
  21. ADCIRCA [Concomitant]
     Active Substance: TADALAFIL
     Indication: PULMONARY ARTERIAL HYPERTENSION
     Dosage: 60 MG, PER DAY
     Route: 048
     Dates: start: 201310
  22. OPSUMIT [Concomitant]
     Active Substance: MACITENTAN
     Indication: PULMONARY ARTERIAL HYPERTENSION
     Dosage: 10 MG, PER DAY
     Route: 048
     Dates: start: 201508
  23. REMODULIN [Suspect]
     Active Substance: TREPROSTINIL
     Dosage: 0.0114 ?G/KG, CONTINUING
     Route: 058
     Dates: start: 2017
  24. REMODULIN [Suspect]
     Active Substance: TREPROSTINIL
     Dosage: UNK, CONTINUING (DOSING RATE OF 7 MCL/HR)
     Route: 058
  25. REMODULIN [Suspect]
     Active Substance: TREPROSTINIL
     Dosage: 0.034 ?G/KG, CONTINUING
     Route: 058
     Dates: start: 20191024
  26. RILMAZAFONE HYDROCHLORIDE [Concomitant]
     Active Substance: RILMAZAFONE HYDROCHLORIDE
     Indication: PROPHYLAXIS
     Dosage: UNK
     Route: 048
     Dates: start: 20170215, end: 20170219
  27. NAUZELIN [Concomitant]
     Active Substance: DOMPERIDONE
     Indication: PROPHYLAXIS
     Dosage: 10 MG, PER DAY
     Route: 048
     Dates: start: 20170608, end: 20170713
  28. OLOPATADINE HYDROCHLORIDE. [Concomitant]
     Active Substance: OLOPATADINE HYDROCHLORIDE
     Indication: PROPHYLAXIS
     Dosage: 10 MG, PER DAY
     Route: 048
     Dates: start: 20180610
  29. REMODULIN [Suspect]
     Active Substance: TREPROSTINIL
     Dosage: UNK, CONTINUING
     Route: 058
     Dates: start: 20170825, end: 20190221
  30. REMODULIN [Suspect]
     Active Substance: TREPROSTINIL
     Dosage: UNK, CONTINUING
     Route: 041
     Dates: start: 20190221

REACTIONS (34)
  - Injection site discolouration [Unknown]
  - Headache [Recovering/Resolving]
  - Injection site warmth [Recovered/Resolved]
  - Injection site pustule [Recovered/Resolved]
  - Depressed mood [Unknown]
  - Allergy to animal [Unknown]
  - Injection site hypertrophy [Unknown]
  - Anaphylactic reaction [Recovered/Resolved]
  - Palpitations [Recovered/Resolved]
  - Chest discomfort [Recovered/Resolved]
  - Injection site scab [Not Recovered/Not Resolved]
  - Phlebitis [Recovered/Resolved]
  - Injection site induration [Recovered/Resolved]
  - Injection site haemorrhage [Recovered/Resolved]
  - Device issue [Unknown]
  - Eye pain [Recovering/Resolving]
  - Injection site infection [Unknown]
  - Injection site scar [Unknown]
  - Dyspnoea [Recovered/Resolved]
  - Injection site pain [Not Recovered/Not Resolved]
  - Injection site ulcer [Not Recovered/Not Resolved]
  - Vomiting [Recovered/Resolved]
  - Injection site discolouration [Recovering/Resolving]
  - Injection site swelling [Recovered/Resolved]
  - Injection site pruritus [Recovered/Resolved]
  - Injection site scar [Recovered/Resolved]
  - Injection site dryness [Unknown]
  - Diarrhoea [Recovered/Resolved]
  - Anaphylactic reaction [Recovered/Resolved]
  - Malaise [Not Recovered/Not Resolved]
  - Nausea [Recovered/Resolved]
  - Hot flush [Recovering/Resolving]
  - Injection site erythema [Recovered/Resolved]
  - Flushing [Not Recovered/Not Resolved]

NARRATIVE: CASE EVENT DATE: 201611
